FAERS Safety Report 5940096-9 (Version None)
Quarter: 2008Q4

REPORT INFORMATION
  Report Type: 
  Country: None (occurrence: None)
  Receive Date: 20081104
  Receipt Date: 20081029
  Transmission Date: 20090506
  Serious: Yes (Hospitalization)
  Sender: FDA-Public Use
  Company Number: PHHY2008JP26610

PATIENT
  Age: 55 Year
  Sex: Female

DRUGS (2)
  1. CYCLOSPORINE [Suspect]
     Indication: INTERSTITIAL LUNG DISEASE
     Route: 048
  2. PREDNISOLONE [Concomitant]
     Indication: SCLERODERMA
     Dosage: UNK

REACTIONS (3)
  - INFECTION [None]
  - INTERSTITIAL LUNG DISEASE [None]
  - THROMBOTIC THROMBOCYTOPENIC PURPURA [None]
